FAERS Safety Report 5719639-6 (Version None)
Quarter: 2008Q2

REPORT INFORMATION
  Report Type: 
  Country: None (occurrence: None)
  Receive Date: 20080428
  Receipt Date: 20080417
  Transmission Date: 20081010
  Serious: Yes (Hospitalization)
  Sender: FDA-Public Use
  Company Number: FR-AVENTIS-200813460GDDC

PATIENT
  Age: 51 Year
  Sex: Male

DRUGS (7)
  1. MINIRIN [Suspect]
     Indication: DIABETES INSIPIDUS
     Route: 055
     Dates: end: 20071026
  2. OXAZEPAM [Concomitant]
     Route: 048
  3. TRIMEPRAZINE TAB [Concomitant]
     Route: 048
  4. ZYPREXA [Concomitant]
  5. SULFARLEM S 25 [Concomitant]
     Route: 048
  6. TERCIAN                            /00759301/ [Concomitant]
     Route: 048
  7. ZOPICLONE [Concomitant]

REACTIONS (8)
  - DRUG INTERACTION [None]
  - FALL [None]
  - GAIT DISTURBANCE [None]
  - HYPONATRAEMIA [None]
  - MALAISE [None]
  - NERVOUS SYSTEM DISORDER [None]
  - URINE POTASSIUM DECREASED [None]
  - URINE SODIUM DECREASED [None]
